FAERS Safety Report 9206007 (Version 1)
Quarter: 2013Q2

REPORT INFORMATION
  Report Type: Report from Study
  Country: US (occurrence: US)
  Receive Date: 20130403
  Receipt Date: 20130403
  Transmission Date: 20140414
  Serious: Yes (Death)
  Sender: FDA-Public Use
  Company Number: US-SANOFI-AVENTIS-2013SA033471

PATIENT
  Age: 63 Year
  Sex: Female
  Weight: 77.8 kg

DRUGS (13)
  1. INSULIN GLARGINE [Suspect]
     Indication: TYPE 2 DIABETES MELLITUS
     Dosage: DOSE:38 UNIT(S)
     Route: 058
     Dates: start: 20121002, end: 20130318
  2. EXENATIDE [Suspect]
     Indication: TYPE 2 DIABETES MELLITUS
     Dosage: 5 MCG IN AM AND 10 MCG IN PM
     Route: 058
     Dates: start: 20121127, end: 20130318
  3. ACETAMINOPHEN [Concomitant]
     Indication: PAIN
     Dates: start: 20130314
  4. LOVASTATIN [Concomitant]
  5. GABAPENTIN [Concomitant]
     Indication: NEURALGIA
  6. DIAZEPAM [Concomitant]
     Indication: MUSCLE SPASMS
     Dates: start: 20130314
  7. DOCUSATE SODIUM [Concomitant]
     Dates: start: 20130314
  8. LOPERAMIDE HYDROCHLORIDE [Concomitant]
  9. ONDANSETRON [Concomitant]
     Indication: NAUSEA
     Dates: start: 20130314
  10. ONDANSETRON [Concomitant]
     Indication: VOMITING
     Dates: start: 20130314
  11. OXYCODONE [Concomitant]
     Dosage: 1-2X EVERY 4 HOURS
     Dates: start: 20130314
  12. SENNA [Concomitant]
     Dates: start: 20130314
  13. METFORMIN [Concomitant]
     Dates: start: 20121002

REACTIONS (3)
  - Myocardial ischaemia [Fatal]
  - Arrhythmia [Fatal]
  - Coronary artery disease [Fatal]
